FAERS Safety Report 4840732-4 (Version None)
Quarter: 2005Q4

REPORT INFORMATION
  Report Type: 
  Country: None (occurrence: None)
  Receive Date: 20051027
  Receipt Date: 20050126
  Transmission Date: 20060501
  Serious: Yes (Other)
  Sender: FDA-Public Use
  Company Number: HQWYE203716JUL04

PATIENT
  Sex: Female
  Weight: 45.4 kg

DRUGS (2)
  1. PREMARIN [Suspect]
     Indication: HOT FLUSH
  2. PROVERA [Suspect]
     Indication: HOT FLUSH

REACTIONS (2)
  - DEEP VEIN THROMBOSIS [None]
  - PULMONARY EMBOLISM [None]
